FAERS Safety Report 12674123 (Version 1)
Quarter: 2016Q3

REPORT INFORMATION
  Report Type: Spontaneous
  Country: CA (occurrence: CA)
  Receive Date: 20160822
  Receipt Date: 20160822
  Transmission Date: 20161109
  Serious: Yes (Death)
  Sender: FDA-Public Use
  Company Number: CA-BAXTER-2016BAX043508

PATIENT
  Sex: Female

DRUGS (1)
  1. 3200 MCG/ML DOPAMINE HYDROCHLORIDE AND 5% DEXTROSE INJECTION [Suspect]
     Active Substance: DOPAMINE HYDROCHLORIDE
     Indication: PRODUCT USED FOR UNKNOWN INDICATION
     Dosage: 20 MCG/KG/MIN, 250 ML BAG
     Route: 041
     Dates: start: 20160720

REACTIONS (3)
  - Inappropriate schedule of drug administration [None]
  - Death [Fatal]
  - Device malfunction [None]

NARRATIVE: CASE EVENT DATE: 20160721
